FAERS Safety Report 13913194 (Version 1)
Quarter: 2017Q3

REPORT INFORMATION
  Report Type: Spontaneous
  Country: US (occurrence: US)
  Receive Date: 20170828
  Receipt Date: 20170828
  Transmission Date: 20171127
  Serious: No
  Sender: FDA-Public Use
  Company Number: US-ROCHE-1125416

PATIENT
  Age: 11 Year
  Sex: Female

DRUGS (2)
  1. NUTROPIN AQ [Suspect]
     Active Substance: SOMATROPIN
     Indication: BODY HEIGHT BELOW NORMAL
  2. NUTROPIN AQ [Suspect]
     Active Substance: SOMATROPIN
     Indication: GROWTH FAILURE
     Route: 058

REACTIONS (2)
  - Pain [Unknown]
  - Increased appetite [Unknown]

NARRATIVE: CASE EVENT DATE: 20000429
